FAERS Safety Report 6519817-2 (Version None)
Quarter: 2009Q4

REPORT INFORMATION
  Report Type: 
  Country: None (occurrence: None)
  Receive Date: 20091228
  Receipt Date: 20091228
  Transmission Date: 20100525
  Serious: Yes (Other)
  Sender: FDA-Public Use
  Company Number: None

PATIENT
  Age: 73 Year
  Sex: Female
  Weight: 81.6475 kg

DRUGS (1)
  1. WARFARIN SODIUM [Suspect]
     Indication: HEART RATE IRREGULAR
     Dosage: 3MG TABLET 1 TABLET DAILY PO
     Route: 048
     Dates: start: 20081008, end: 20090201

REACTIONS (7)
  - ERYTHEMA [None]
  - PRODUCT SUBSTITUTION ISSUE [None]
  - PRURITUS [None]
  - REACTION TO DRUG EXCIPIENTS [None]
  - SKIN EXFOLIATION [None]
  - SUNBURN [None]
  - SWELLING FACE [None]
